FAERS Safety Report 4608911-9 (Version None)
Quarter: 2005Q1

REPORT INFORMATION
  Report Type: 
  Country: None (occurrence: None)
  Receive Date: 20050309
  Receipt Date: 20050228
  Transmission Date: 20050727
  Serious: Yes (Death, Hospitalization, Other)
  Sender: FDA-Public Use
  Company Number: 2005039199

PATIENT
  Age: 47 Year
  Sex: Male

DRUGS (1)
  1. LIPITOR [Suspect]
     Indication: HYPERCHOLESTEROLAEMIA
     Dosage: ORAL
     Route: 048
     Dates: start: 20010101, end: 20010801

REACTIONS (5)
  - ACUTE MYOCARDIAL INFARCTION [None]
  - AMYOTROPHIC LATERAL SCLEROSIS [None]
  - CONDITION AGGRAVATED [None]
  - QUADRIPLEGIA [None]
  - RHABDOMYOLYSIS [None]
